FAERS Safety Report 8264716-1 (Version None)
Quarter: 2012Q2

REPORT INFORMATION
  Report Type: 
  Country: None (occurrence: None)
  Receive Date: 20120406
  Receipt Date: 20120326
  Transmission Date: 20120825
  Serious: Yes (Hospitalization, Other)
  Sender: FDA-Public Use
  Company Number: US-SANOFI-AVENTIS-2012SA021017

PATIENT
  Age: 37 Year
  Sex: Female
  Weight: 74.8 kg

DRUGS (3)
  1. LASIX [Suspect]
  2. PREDNISONE [Suspect]
  3. REMICADE [Suspect]
     Indication: AUTOIMMUNE DISORDER

REACTIONS (6)
  - BLINDNESS [None]
  - KERATITIS INTERSTITIAL [None]
  - WEIGHT INCREASED [None]
  - OEDEMA PERIPHERAL [None]
  - PNEUMONIA [None]
  - OSTEONECROSIS [None]
